FAERS Safety Report 24941713 (Version 2)
Quarter: 2025Q1

REPORT INFORMATION
  Report Type: Report from Study
  Country: DE (occurrence: DE)
  Receive Date: 20250207
  Receipt Date: 20250220
  Transmission Date: 20250409
  Serious: Yes (Other)
  Sender: JOHNSON AND JOHNSON
  Company Number: DE-JNJFOC-20250214436

PATIENT
  Age: 74 Year
  Sex: Male

DRUGS (3)
  1. GUSELKUMAB [Suspect]
     Active Substance: GUSELKUMAB
     Indication: Psoriatic arthropathy
     Route: 065
     Dates: start: 20231005, end: 20231102
  2. GUSELKUMAB [Suspect]
     Active Substance: GUSELKUMAB
     Route: 065
     Dates: start: 20231228
  3. GUSELKUMAB [Suspect]
     Active Substance: GUSELKUMAB

REACTIONS (2)
  - Pneumonia [Recovered/Resolved]
  - Immunodeficiency [Unknown]

NARRATIVE: CASE EVENT DATE: 20241003
